FAERS Safety Report 11360055 (Version 5)
Quarter: 2017Q2

REPORT INFORMATION
  Report Type: Report from Study
  Country: PL (occurrence: PL)
  Receive Date: 20150810
  Receipt Date: 20170428
  Transmission Date: 20170829
  Serious: Yes (Other)
  Sender: FDA-Public Use
  Company Number: PL-ROCHE-1613736

PATIENT
  Age: 51 Year
  Sex: Male

DRUGS (63)
  1. OBINUTUZUMAB [Suspect]
     Active Substance: OBINUTUZUMAB
     Indication: CHRONIC LYMPHOCYTIC LEUKAEMIA
     Dosage: CYCLE 1, DAY 1, LAST DOSE PRIOR TO SAE WAS TAKEN ON 11/MAR/2015
     Route: 042
     Dates: start: 20141231, end: 20141231
  2. CLEMASTINE [Concomitant]
     Active Substance: CLEMASTINE
     Route: 048
     Dates: start: 20150211, end: 20150211
  3. MILURIT [Concomitant]
     Active Substance: ALLOPURINOL
     Route: 048
     Dates: start: 20150103, end: 20150127
  4. CONTROLOC [Concomitant]
     Active Substance: PANTOPRAZOLE SODIUM
     Route: 048
     Dates: start: 20160217
  5. CONCOR [Concomitant]
     Active Substance: BISOPROLOL FUMARATE
     Route: 048
     Dates: start: 20150827, end: 20150827
  6. CLEMASTINE [Concomitant]
     Active Substance: CLEMASTINE
     Route: 048
     Dates: start: 20150311, end: 20150311
  7. FASTURTEC [Concomitant]
     Active Substance: RASBURICASE
     Route: 042
     Dates: start: 20150103, end: 20150103
  8. CEFUROXIME. [Concomitant]
     Active Substance: CEFUROXIME
     Route: 042
     Dates: start: 20150102, end: 20150107
  9. KLACID [Concomitant]
     Active Substance: CLARITHROMYCIN
     Route: 048
     Dates: start: 20150102, end: 20150107
  10. MILURIT [Concomitant]
     Active Substance: ALLOPURINOL
     Route: 048
     Dates: start: 20150217, end: 20150310
  11. FOLIC ACID. [Concomitant]
     Active Substance: FOLIC ACID
     Route: 048
     Dates: start: 20150128, end: 20150702
  12. CONCOR [Concomitant]
     Active Substance: BISOPROLOL FUMARATE
     Route: 048
     Dates: start: 20150828
  13. BENDAMUSTINE [Suspect]
     Active Substance: BENDAMUSTINE
     Dosage: CYCLE 2 DAY 1
     Route: 042
     Dates: start: 20150211, end: 20150211
  14. BENDAMUSTINE [Suspect]
     Active Substance: BENDAMUSTINE
     Dosage: CYCLE 3, DAY 1,
     Route: 042
     Dates: start: 20150311, end: 20150311
  15. NIVESTIM [Concomitant]
     Active Substance: FILGRASTIM
     Route: 058
     Dates: start: 20150105, end: 20150106
  16. DEXAVEN [Concomitant]
     Active Substance: DEXAMETHASONE
     Route: 042
     Dates: start: 20150114, end: 20150114
  17. DEXAVEN [Concomitant]
     Active Substance: DEXAMETHASONE
     Route: 042
     Dates: start: 20150211, end: 20150211
  18. CLEMASTINE [Concomitant]
     Active Substance: CLEMASTINE
     Route: 048
     Dates: start: 20150107, end: 20150107
  19. PYRALGIN (POLAND) [Concomitant]
     Route: 042
     Dates: start: 20150102, end: 20150102
  20. FROMILID UNO [Concomitant]
     Route: 048
     Dates: start: 20151229, end: 20160104
  21. BENDAMUSTINE [Suspect]
     Active Substance: BENDAMUSTINE
     Indication: CHRONIC LYMPHOCYTIC LEUKAEMIA
     Dosage: CYCLE 1 DAY 1, LAST DOSE PRIOR TO SAE WAS TAKEN ON 12/MAR/2015
     Route: 042
     Dates: start: 20141231, end: 20141231
  22. CLEMASTINE [Concomitant]
     Active Substance: CLEMASTINE
     Route: 048
     Dates: start: 20141231, end: 20141231
  23. PARACETAMOL [Concomitant]
     Active Substance: ACETAMINOPHEN
     Route: 048
     Dates: start: 20150211, end: 20150211
  24. MILURIT [Concomitant]
     Active Substance: ALLOPURINOL
     Route: 048
     Dates: start: 20150128, end: 20150208
  25. OBINUTUZUMAB [Suspect]
     Active Substance: OBINUTUZUMAB
     Dosage: CYCLE 1, DAY 2
     Route: 042
     Dates: start: 20150101, end: 20150101
  26. OBINUTUZUMAB [Suspect]
     Active Substance: OBINUTUZUMAB
     Dosage: CYCLE 1, DAY 15
     Route: 042
     Dates: start: 20150114, end: 20150114
  27. OBINUTUZUMAB [Suspect]
     Active Substance: OBINUTUZUMAB
     Dosage: CYCLE 3, DAY 1
     Route: 042
     Dates: start: 20150311, end: 20150311
  28. BENDAMUSTINE [Suspect]
     Active Substance: BENDAMUSTINE
     Dosage: CYCLE 2 DAY 2, TEMPORARILY INTERRUPTED
     Route: 042
     Dates: start: 20150212, end: 20150212
  29. DEXAVEN [Concomitant]
     Active Substance: DEXAMETHASONE
     Route: 042
     Dates: start: 20141231, end: 20141231
  30. PARACETAMOL [Concomitant]
     Active Substance: ACETAMINOPHEN
     Route: 048
     Dates: start: 20150107, end: 20150107
  31. FASTURTEC [Concomitant]
     Active Substance: RASBURICASE
     Route: 042
     Dates: start: 20150102, end: 20150102
  32. ENCORTON [Concomitant]
     Active Substance: PREDNISONE
     Route: 048
     Dates: start: 20150212, end: 20150408
  33. ENCORTON [Concomitant]
     Active Substance: PREDNISONE
     Route: 048
     Dates: start: 20150703, end: 20150707
  34. ENCORTON [Concomitant]
     Active Substance: PREDNISONE
     Route: 048
     Dates: start: 20150713, end: 20150717
  35. VITAMIN B6 [Concomitant]
     Active Substance: PYRIDOXINE HYDROCHLORIDE
     Route: 048
     Dates: start: 20150128, end: 20150702
  36. VITAMIN D3 [Concomitant]
     Active Substance: CHOLECALCIFEROL
     Indication: PROPHYLAXIS
     Route: 048
     Dates: start: 20150828
  37. NACL .9% [Concomitant]
     Route: 042
     Dates: start: 20150102, end: 20150102
  38. NACL .9% [Concomitant]
     Route: 042
     Dates: start: 20150103, end: 20150103
  39. OBINUTUZUMAB [Suspect]
     Active Substance: OBINUTUZUMAB
     Dosage: CYCLE 1, DAY 8
     Route: 042
     Dates: start: 20150107, end: 20150107
  40. DEXAMETHASONE. [Concomitant]
     Active Substance: DEXAMETHASONE
     Route: 048
     Dates: start: 20141230, end: 20141230
  41. DEXAVEN [Concomitant]
     Active Substance: DEXAMETHASONE
     Route: 042
     Dates: start: 20150101, end: 20150101
  42. CLEMASTINE [Concomitant]
     Active Substance: CLEMASTINE
     Route: 048
     Dates: start: 20150114, end: 20150114
  43. PARACETAMOL [Concomitant]
     Active Substance: ACETAMINOPHEN
     Route: 048
     Dates: start: 20150114, end: 20150114
  44. LACIDOFIL [Concomitant]
     Active Substance: LACTOBACILLUS ACIDOPHILUS\LACTOBACILLUS RHAMNOSUS
     Route: 048
     Dates: start: 20150102, end: 20150107
  45. ENCORTON [Concomitant]
     Active Substance: PREDNISONE
     Route: 048
     Dates: start: 20150708, end: 20150712
  46. PLATELETS [Concomitant]
     Active Substance: HUMAN PLATELET, ALLOGENIC
     Route: 042
     Dates: start: 20150209, end: 20150209
  47. OBINUTUZUMAB [Suspect]
     Active Substance: OBINUTUZUMAB
     Dosage: CYCLE 2, DAY 1
     Route: 042
     Dates: start: 20150211, end: 20150211
  48. BENDAMUSTINE [Suspect]
     Active Substance: BENDAMUSTINE
     Dosage: CYCLE 1 DAY 2
     Route: 042
     Dates: start: 20150101, end: 20150101
  49. BENDAMUSTINE [Suspect]
     Active Substance: BENDAMUSTINE
     Dosage: CYCLE 3, DAY 2
     Route: 042
     Dates: start: 20150312, end: 20150312
  50. DEXAVEN [Concomitant]
     Active Substance: DEXAMETHASONE
     Route: 042
     Dates: start: 20150102, end: 20150102
  51. DEXAVEN [Concomitant]
     Active Substance: DEXAMETHASONE
     Route: 042
     Dates: start: 20150107, end: 20150107
  52. PARACETAMOL [Concomitant]
     Active Substance: ACETAMINOPHEN
     Route: 048
     Dates: start: 20141231, end: 20150104
  53. PARACETAMOL [Concomitant]
     Active Substance: ACETAMINOPHEN
     Route: 048
     Dates: start: 20150311, end: 20150311
  54. BIORACEF [Concomitant]
     Route: 048
     Dates: start: 20150107, end: 20150107
  55. DANAZOL. [Concomitant]
     Active Substance: DANAZOL
     Route: 048
     Dates: start: 20150128, end: 20150702
  56. PLATELETS [Concomitant]
     Active Substance: HUMAN PLATELET, ALLOGENIC
     Route: 042
     Dates: start: 20150211, end: 20150211
  57. BIOTYK [Concomitant]
     Indication: PROPHYLAXIS
     Route: 048
     Dates: start: 20170115, end: 20170214
  58. DEXAVEN [Concomitant]
     Active Substance: DEXAMETHASONE
     Route: 042
     Dates: start: 20150311, end: 20150311
  59. CLEMASTINE [Concomitant]
     Active Substance: CLEMASTINE
     Route: 048
     Dates: start: 20150101, end: 20150101
  60. DANAZOL. [Concomitant]
     Active Substance: DANAZOL
     Route: 048
     Dates: start: 20150703, end: 20150707
  61. CYCLONAMINE [Concomitant]
     Active Substance: ETHAMSYLATE
     Route: 048
     Dates: start: 20150128, end: 20150603
  62. ENCORTON [Concomitant]
     Active Substance: PREDNISONE
     Route: 048
     Dates: start: 20150409, end: 20150702
  63. ACC [Concomitant]
     Active Substance: ACETYLCYSTEINE
     Route: 048
     Dates: start: 20151229, end: 20160104

REACTIONS (1)
  - Interstitial lung disease [Not Recovered/Not Resolved]

NARRATIVE: CASE EVENT DATE: 20150707
